FAERS Safety Report 12577223 (Version 1)
Quarter: 2016Q3

REPORT INFORMATION
  Report Type: Spontaneous
  Country: US (occurrence: US)
  Receive Date: 20160720
  Receipt Date: 20160720
  Transmission Date: 20161109
  Serious: No
  Sender: FDA-Public Use
  Company Number: US-PERRIGO-16US013786

PATIENT
  Age: 16 Year
  Sex: Female
  Weight: 49.89 kg

DRUGS (4)
  1. BIRTH CONTROL [Concomitant]
     Active Substance: UNSPECIFIED INGREDIENT
     Indication: CONTRACEPTION
     Dosage: UNK
     Route: 065
     Dates: start: 2015
  2. MICONAZOLE 1 [Suspect]
     Active Substance: MICONAZOLE NITRATE
     Indication: VULVOVAGINAL MYCOTIC INFECTION
     Dosage: 1200 MG, TWICE IN 6 MONTHS
     Route: 067
     Dates: start: 2015, end: 2015
  3. MICONAZOLE 1 [Suspect]
     Active Substance: MICONAZOLE NITRATE
     Dosage: 1200 MG, SINGLE
     Route: 067
     Dates: start: 20160301, end: 20160301
  4. THERAFLU                           /00446801/ [Concomitant]
     Active Substance: ACETAMINOPHEN\CHLORPHENIRAMINE MALEATE\PSEUDOEPHEDRINE HYDROCHLORIDE
     Indication: INFLUENZA
     Dosage: UNK
     Route: 065
     Dates: start: 20160301

REACTIONS (4)
  - Vulvovaginal burning sensation [Recovering/Resolving]
  - Vulvovaginal erythema [Recovering/Resolving]
  - Off label use [Recovered/Resolved]
  - Vulvovaginal pain [Recovering/Resolving]

NARRATIVE: CASE EVENT DATE: 2015
